FAERS Safety Report 12266617 (Version 1)
Quarter: 2016Q2

REPORT INFORMATION
  Report Type: Spontaneous
  Country: US (occurrence: None)
  Receive Date: 20160413
  Receipt Date: 20160413
  Transmission Date: 20160815
  Serious: Yes (Life-Threatening, Hospitalization, Disabling)
  Sender: FDA-Public Use
  Company Number: None

PATIENT

DRUGS (5)
  1. BLOOD PRESSURE MED [Concomitant]
  2. BENICAR [Concomitant]
     Active Substance: OLMESARTAN MEDOXOMIL
  3. LEVAQUIN [Suspect]
     Active Substance: LEVOFLOXACIN
     Indication: SINUSITIS
     Dosage: 1ST 500MG-10 PILLS?2ND 500MG- 7 PILLS?3RD 500MG - 4 OF 7
     Route: 048
     Dates: start: 20031209, end: 20130305
  4. LOTOL [Concomitant]
  5. ATENOLOL. [Concomitant]
     Active Substance: ATENOLOL

REACTIONS (6)
  - Muscle disorder [None]
  - Musculoskeletal disorder [None]
  - Mental disorder [None]
  - Ligament disorder [None]
  - Tendon disorder [None]
  - Nervous system disorder [None]

NARRATIVE: CASE EVENT DATE: 20031209
